FAERS Safety Report 20996584 (Version 2)
Quarter: 2022Q3

REPORT INFORMATION
  Report Type: Spontaneous
  Country: CN (occurrence: CN)
  Receive Date: 20220623
  Receipt Date: 20220719
  Transmission Date: 20221027
  Serious: Yes (Hospitalization)
  Sender: FDA-Public Use
  Company Number: CN-NOVOPROD-928691

PATIENT
  Age: 76 Year
  Sex: Female

DRUGS (2)
  1. INSULIN DETEMIR [Suspect]
     Active Substance: INSULIN DETEMIR
     Indication: Type 2 diabetes mellitus
     Dosage: 8 IU, QD(BEFORE SLEEP)
     Route: 065
     Dates: start: 20220527
  2. NOVORAPID [Suspect]
     Active Substance: INSULIN ASPART
     Indication: Type 2 diabetes mellitus
     Dosage: 8 IU, TID(MORNING, NOON, AND EVENING)
     Route: 065
     Dates: start: 20220527

REACTIONS (2)
  - Vitreous haemorrhage [Unknown]
  - Product quality issue [Unknown]

NARRATIVE: CASE EVENT DATE: 20220527
